FAERS Safety Report 9207016 (Version 2)
Quarter: 2013Q4

REPORT INFORMATION
  Report Type: Spontaneous
  Country: US (occurrence: US)
  Receive Date: 20130403
  Receipt Date: 20131115
  Transmission Date: 20140711
  Serious: Yes (Other)
  Sender: FDA-Public Use
  Company Number: US-BAYER-2013-040515

PATIENT
  Age: 23 Year
  Sex: Female

DRUGS (7)
  1. YAZ [Suspect]
     Dosage: UNK
     Route: 048
     Dates: start: 2008, end: 2009
  2. YASMIN [Suspect]
     Dosage: UNK
     Route: 048
     Dates: start: 2008, end: 2009
  3. OCELLA [Suspect]
     Dosage: UNK
     Route: 048
     Dates: start: 2008, end: 2009
  4. COLACE [Concomitant]
  5. LANOLIN [Concomitant]
  6. PRENATAL VITAMINS [Concomitant]
  7. HYDROCODONE [Concomitant]

REACTIONS (11)
  - Cholelithiasis [None]
  - Cholecystitis chronic [None]
  - Abdominal pain [None]
  - Injury [None]
  - Pain [None]
  - Emotional distress [None]
  - General physical health deterioration [None]
  - Anxiety [None]
  - Pain [None]
  - Fear [None]
  - Anhedonia [None]
